FAERS Safety Report 9016471 (Version 1)
Quarter: 2013Q1

REPORT INFORMATION
  Report Type: Spontaneous
  Country: US (occurrence: US)
  Receive Date: 20130116
  Receipt Date: 20130116
  Transmission Date: 20140127
  Serious: Yes (Hospitalization)
  Sender: FDA-Public Use
  Company Number: US-INCYTE CORPORATION-2013IN000058

PATIENT
  Sex: Male

DRUGS (2)
  1. JAKAFI [Suspect]
     Dosage: 5 MG, BID
     Route: 048
     Dates: start: 20120817
  2. HYDREA [Concomitant]

REACTIONS (3)
  - Tooth socket haemorrhage [Unknown]
  - Tooth infection [Unknown]
  - Tooth fracture [Unknown]
